FAERS Safety Report 16868930 (Version 5)
Quarter: 2019Q4

REPORT INFORMATION
  Report Type: Report from Study
  Country: US (occurrence: US)
  Receive Date: 20190930
  Receipt Date: 20191218
  Transmission Date: 20200122
  Serious: Yes (Hospitalization)
  Sender: FDA-Public Use
  Company Number: US-ACTELION-A-US2019-196090

PATIENT
  Sex: Male
  Weight: 90.7 kg

DRUGS (5)
  1. UPTRAVI [Suspect]
     Active Substance: SELEXIPAG
     Indication: PULMONARY ARTERIAL HYPERTENSION
     Dosage: 1600 MCG, BID
     Route: 048
  2. UPTRAVI [Suspect]
     Active Substance: SELEXIPAG
     Dosage: UNK
     Route: 048
  3. OPSUMIT [Suspect]
     Active Substance: MACITENTAN
     Indication: PULMONARY ARTERIAL HYPERTENSION
     Dosage: 10 MG, QD
     Route: 048
  4. UPTRAVI [Suspect]
     Active Substance: SELEXIPAG
     Dosage: 1400 MCG, BID
     Route: 048
  5. ADEMPAS [Concomitant]
     Active Substance: RIOCIGUAT

REACTIONS (10)
  - Hypophagia [Recovering/Resolving]
  - Blood potassium decreased [Unknown]
  - Dehydration [Unknown]
  - Hypotension [Unknown]
  - Incarcerated umbilical hernia [Unknown]
  - Anuria [Recovering/Resolving]
  - Abdominal distension [Recovering/Resolving]
  - Small intestinal obstruction [Recovering/Resolving]
  - Loss of consciousness [Unknown]
  - Hernia repair [Unknown]
